FAERS Safety Report 8352836-2 (Version None)
Quarter: 2012Q2

REPORT INFORMATION
  Report Type: 
  Country: None (occurrence: None)
  Receive Date: 20120511
  Receipt Date: 20120504
  Transmission Date: 20120825
  Serious: Yes (Hospitalization)
  Sender: FDA-Public Use
  Company Number: DE-B.I. PHARMACEUTICALS,INC./RIDGEFIELD-2011-DE-06623DE

PATIENT
  Sex: Male
  Weight: 102 kg

DRUGS (11)
  1. PRADAXA [Suspect]
     Dosage: 220 MG
     Dates: start: 20111125
  2. LERCANIDIPINE [Concomitant]
     Dosage: 20 MG
  3. AMARYL [Concomitant]
     Dosage: 6 MG
  4. SOTALOL HCL [Concomitant]
     Dosage: 320 MG
  5. NEPHROTRANS [Concomitant]
     Dosage: 2 ANZ
  6. PHANTOPRAZOL [Concomitant]
  7. PRADAXA [Suspect]
     Indication: ATRIAL FIBRILLATION
     Dosage: 300 MG
     Dates: start: 20111113
  8. METFORMIN HYDROCHLORIDE [Concomitant]
     Dosage: 2 ANZ
  9. ROCALTROL [Concomitant]
     Dosage: 0.5 MG
  10. DEILIX PLUS [Concomitant]
     Dosage: 5 MG
  11. AVODART [Concomitant]
     Dosage: 1 MG

REACTIONS (3)
  - HAEMATURIA [None]
  - BLOOD URINE PRESENT [None]
  - DEVICE CAPTURING ISSUE [None]
